FAERS Safety Report 7704665-8 (Version None)
Quarter: 2011Q3

REPORT INFORMATION
  Report Type: 
  Country: None (occurrence: None)
  Receive Date: 20110823
  Receipt Date: 20110815
  Transmission Date: 20111222
  Serious: Yes (Hospitalization, Other)
  Sender: FDA-Public Use
  Company Number: CHPA2011US10907

PATIENT
  Age: 70 Year
  Sex: Male

DRUGS (1)
  1. BENEFIBER W/ WHEAT DEXTRIN [Suspect]
     Indication: CONSTIPATION
     Dosage: 2 TSP, 2-4 TIMES A DAY
     Route: 048
     Dates: start: 20110601, end: 20110701

REACTIONS (7)
  - LARGE INTESTINAL HAEMORRHAGE [None]
  - ANAEMIA [None]
  - CONSTIPATION [None]
  - FUNCTIONAL GASTROINTESTINAL DISORDER [None]
  - PROSTATE CANCER [None]
  - DRUG INEFFECTIVE FOR UNAPPROVED INDICATION [None]
  - OVERDOSE [None]
